FAERS Safety Report 11126246 (Version 2)
Quarter: 2015Q3

REPORT INFORMATION
  Report Type: Spontaneous
  Country: US (occurrence: US)
  Receive Date: 20150520
  Receipt Date: 20150810
  Transmission Date: 20151125
  Serious: No
  Sender: FDA-Public Use
  Company Number: US-AMGEN-USASP2015045583

PATIENT
  Age: 63 Year
  Sex: Female

DRUGS (1)
  1. ENBREL [Suspect]
     Active Substance: ETANERCEPT
     Indication: RHEUMATOID ARTHRITIS
     Dosage: 25 MG, 2 TIMES/WK
     Route: 058
     Dates: start: 201304

REACTIONS (10)
  - Costochondritis [Not Recovered/Not Resolved]
  - Limb discomfort [Recovered/Resolved]
  - Nasopharyngitis [Recovered/Resolved]
  - Insomnia [Unknown]
  - Nasal congestion [Not Recovered/Not Resolved]
  - Stress [Unknown]
  - Cough [Not Recovered/Not Resolved]
  - Sputum discoloured [Recovered/Resolved]
  - Pain [Unknown]
  - Bronchitis [Not Recovered/Not Resolved]

NARRATIVE: CASE EVENT DATE: 201504
